FAERS Safety Report 17570685 (Version 7)
Quarter: 2022Q3

REPORT INFORMATION
  Report Type: Other
  Country: CA (occurrence: None)
  Receive Date: 20200323
  Receipt Date: 20220824
  Transmission Date: 20221027
  Serious: Yes (Other)
  Sender: FDA-Public Use
  Company Number: CA-ROCHE-2559985

PATIENT
  Age: 30 Year
  Sex: Female

DRUGS (2)
  1. OCREVUS [Suspect]
     Active Substance: OCRELIZUMAB
     Indication: Multiple sclerosis
     Dosage: 300 MG IV DAYS 1-15 600 MG IV EVERY 6 MONTHS
     Route: 042
     Dates: start: 20200224
  2. OCREVUS [Suspect]
     Active Substance: OCRELIZUMAB
     Indication: Relapsing-remitting multiple sclerosis
     Route: 042

REACTIONS (19)
  - Infusion related reaction [Recovered/Resolved]
  - Gastroenteritis [Not Recovered/Not Resolved]
  - Dyspnoea [Not Recovered/Not Resolved]
  - Oral herpes [Not Recovered/Not Resolved]
  - Gastroenteritis viral [Recovered/Resolved]
  - Oral herpes [Recovered/Resolved]
  - Abscess oral [Recovering/Resolving]
  - Tonsillar hypertrophy [Recovering/Resolving]
  - Pain in extremity [Not Recovered/Not Resolved]
  - Dyspnoea [Not Recovered/Not Resolved]
  - Oral fungal infection [Unknown]
  - Infusion related reaction [Recovered/Resolved]
  - Abscess of salivary gland [Recovered/Resolved]
  - Nausea [Unknown]
  - Skin plaque [Unknown]
  - Mass [Unknown]
  - Benign soft tissue neoplasm [Unknown]
  - Multiple sclerosis [Not Recovered/Not Resolved]
  - Stress [Unknown]

NARRATIVE: CASE EVENT DATE: 20200224
